FAERS Safety Report 9323335 (Version 2)
Quarter: 2013Q2

REPORT INFORMATION
  Report Type: Spontaneous
  Country: US (occurrence: US)
  Receive Date: 20130603
  Receipt Date: 20130611
  Transmission Date: 20140414
  Serious: Yes (Death, Hospitalization, Other)
  Sender: FDA-Public Use
  Company Number: US-AMGEN-USASP2013038540

PATIENT
  Age: 86 Year
  Sex: Female
  Weight: 69.84 kg

DRUGS (3)
  1. PROLIA [Suspect]
     Indication: OSTEOPOROSIS POSTMENOPAUSAL
     Dosage: 60 MG, Q6MO
     Route: 058
     Dates: start: 20120124, end: 20120810
  2. PROLIA [Suspect]
     Dosage: UNK
     Dates: start: 201208
  3. LEVOPHED [Concomitant]

REACTIONS (12)
  - Respiratory failure [Fatal]
  - Shock [Fatal]
  - Cardiac arrest [Fatal]
  - Bradycardia [Unknown]
  - Hypotension [Unknown]
  - Dyspnoea [Unknown]
  - Disseminated intravascular coagulation [Unknown]
  - Anaemia [Unknown]
  - Thrombocytopenia [Unknown]
  - Back pain [Unknown]
  - Arthralgia [Unknown]
  - Pain in extremity [Unknown]
